FAERS Safety Report 11124147 (Version 1)
Quarter: 2015Q2

REPORT INFORMATION
  Report Type: Spontaneous
  Country: US (occurrence: None)
  Receive Date: 20150519
  Receipt Date: 20150519
  Transmission Date: 20150821
  Serious: No
  Sender: FDA-Public Use
  Company Number: None

PATIENT
  Sex: Male

DRUGS (3)
  1. MORPHINE SUL [Concomitant]
  2. METOPROLOL TARTATE [Concomitant]
     Active Substance: METOPROLOL TARTRATE
  3. ZYTIGA [Suspect]
     Active Substance: ABIRATERONE ACETATE
     Indication: PROSTATE CANCER
     Route: 048
     Dates: start: 20150506

REACTIONS (2)
  - Nausea [None]
  - Vomiting [None]
